FAERS Safety Report 15227324 (Version 2)
Quarter: 2018Q3

REPORT INFORMATION
  Report Type: Spontaneous
  Country: JP (occurrence: JP)
  Receive Date: 20180801
  Receipt Date: 20180802
  Transmission Date: 20181010
  Serious: Yes (Other)
  Sender: FDA-Public Use
  Company Number: JP-TEVA-2018-JP-003888J

PATIENT
  Age: 75 Year
  Sex: Female

DRUGS (8)
  1. LOXONIN [Suspect]
     Active Substance: LOXOPROFEN SODIUM
     Indication: ARTHRALGIA
     Dosage: AS NEEDED
     Route: 065
  2. AZILVA [Concomitant]
     Active Substance: AZILSARTAN KAMEDOXOMIL
     Dosage: 20 MILLIGRAM DAILY;
     Route: 048
     Dates: start: 20160121
  3. ATORVASTATIN [Concomitant]
     Active Substance: ATORVASTATIN
     Dosage: 5 MILLIGRAM DAILY;
     Route: 048
     Dates: start: 20160121
  4. CLOPIDOGREL TABLET 75MG TEVA [Suspect]
     Active Substance: CLOPIDOGREL BISULFATE
     Indication: ARTERIOSCLEROSIS
  5. LANSOPRAZOLE OD [Concomitant]
     Active Substance: LANSOPRAZOLE
     Dosage: 15 MILLIGRAM DAILY;
     Route: 048
     Dates: start: 20160121
  6. PERSANTIN [Concomitant]
     Active Substance: DIPYRIDAMOLE
     Dosage: 75 MILLIGRAM DAILY;
     Route: 065
     Dates: start: 20160121
  7. AMLODIPINE [Concomitant]
     Active Substance: AMLODIPINE BESYLATE
     Dosage: 2.5 MILLIGRAM DAILY;
     Route: 048
     Dates: start: 20160121
  8. CLOPIDOGREL TABLET 75MG TEVA [Suspect]
     Active Substance: CLOPIDOGREL BISULFATE
     Indication: CEREBROVASCULAR STENOSIS
     Dosage: 75 MILLIGRAM DAILY;
     Route: 048
     Dates: start: 20180131, end: 20180722

REACTIONS (4)
  - Small intestine ulcer [Recovered/Resolved]
  - Small intestinal haemorrhage [Recovered/Resolved]
  - Anaemia [Unknown]
  - Haemoglobin decreased [Recovered/Resolved]

NARRATIVE: CASE EVENT DATE: 201807
